FAERS Safety Report 5359226-5 (Version None)
Quarter: 2007Q2

REPORT INFORMATION
  Report Type: 
  Country: None (occurrence: None)
  Receive Date: 20070615
  Receipt Date: 20070605
  Transmission Date: 20071010
  Serious: Yes (Other)
  Sender: FDA-Public Use
  Company Number: AT-ASTRAZENECA-2006PK02382

PATIENT
  Age: 23943 Day
  Sex: Female

DRUGS (1)
  1. ARIMIDEX [Suspect]
     Indication: BREAST CANCER
     Route: 048
     Dates: start: 20031103, end: 20050330

REACTIONS (3)
  - GENERALISED OEDEMA [None]
  - OSTEOARTHRITIS [None]
  - TOE DEFORMITY [None]
